FAERS Safety Report 7590817-7 (Version None)
Quarter: 2011Q3

REPORT INFORMATION
  Report Type: 
  Country: None (occurrence: None)
  Receive Date: 20110705
  Receipt Date: 20110623
  Transmission Date: 20111222
  Serious: Yes (Other)
  Sender: FDA-Public Use
  Company Number: GB-ASTRAZENECA-2011SE36446

PATIENT
  Age: 89 Year
  Sex: Male
  Weight: 67 kg

DRUGS (1)
  1. ZOLADEX [Suspect]
     Indication: PROSTATE CANCER
     Route: 058

REACTIONS (2)
  - DRUG DOSE OMISSION [None]
  - DEVICE MALFUNCTION [None]
